FAERS Safety Report 10578551 (Version 1)
Quarter: 2014Q4

REPORT INFORMATION
  Report Type: Spontaneous
  Country: US (occurrence: US)
  Receive Date: 20141112
  Receipt Date: 20141112
  Transmission Date: 20150529
  Serious: No
  Sender: FDA-Public Use
  Company Number: US-MYLANLABS-2014M1003907

PATIENT
  Age: 38 Year
  Sex: Male
  Weight: 90.7 kg

DRUGS (4)
  1. MODAFINIL TABLETS, USP [Suspect]
     Active Substance: MODAFINIL
     Indication: NARCOLEPSY
     Dosage: 200 MG, UNK
     Route: 048
     Dates: start: 20140816, end: 20140819
  2. DOXEPIN                            /00138002/ [Concomitant]
     Active Substance: DOXEPIN
     Indication: ANXIETY
     Dosage: 50 MG, HS
     Route: 048
     Dates: start: 2013
  3. HYDROXYZINE [Concomitant]
     Active Substance: HYDROXYZINE\HYDROXYZINE HYDROCHLORIDE
     Indication: ANXIETY
     Dosage: 50 MG, TID
     Route: 048
     Dates: start: 2013
  4. LITHIUM                            /00033702/ [Concomitant]
     Indication: BIPOLAR DISORDER
     Dosage: 600 MG, HS
     Route: 048
     Dates: start: 2013

REACTIONS (2)
  - Headache [Recovered/Resolved]
  - Nausea [Recovered/Resolved]

NARRATIVE: CASE EVENT DATE: 20140817
